FAERS Safety Report 20672950 (Version 1)
Quarter: 2022Q2

REPORT INFORMATION
  Report Type: Spontaneous
  Country: US (occurrence: None)
  Receive Date: 20220403
  Receipt Date: 20220403
  Transmission Date: 20220720
  Serious: Yes (Death)
  Sender: FDA-Public Use
  Company Number: None

PATIENT
  Age: 75 Year
  Sex: Male
  Weight: 91 kg

DRUGS (1)
  1. CILGAVIMAB\TIXAGEVIMAB [Suspect]
     Active Substance: CILGAVIMAB\TIXAGEVIMAB
     Indication: Sudden death
     Dosage: OTHER QUANTITY : 300/300MG;?FREQUENCY : ONCE;?
     Route: 030
     Dates: start: 20220329, end: 20220329

REACTIONS (2)
  - Sudden death [None]
  - Death [None]

NARRATIVE: CASE EVENT DATE: 20220330
